FAERS Safety Report 9325736 (Version 2)
Quarter: 2013Q2

REPORT INFORMATION
  Report Type: Report from Study
  Country: US (occurrence: US)
  Receive Date: 20130604
  Receipt Date: 20130605
  Transmission Date: 20140414
  Serious: Yes (Hospitalization)
  Sender: FDA-Public Use
  Company Number: US-ABBOTT-13P-163-1096271-00

PATIENT
  Age: 60 Year
  Sex: Male
  Weight: 70.37 kg

DRUGS (2)
  1. HUMIRA [Suspect]
     Indication: REITER^S SYNDROME
     Dates: start: 201209, end: 201211
  2. HUMIRA [Suspect]
     Dates: start: 201304

REACTIONS (4)
  - Loss of consciousness [Recovered/Resolved]
  - Renal impairment [Recovered/Resolved]
  - Lower limb fracture [Recovering/Resolving]
  - Weight decreased [Not Recovered/Not Resolved]
